FAERS Safety Report 7946710-0 (Version None)
Quarter: 2011Q4

REPORT INFORMATION
  Report Type: 
  Country: None (occurrence: None)
  Receive Date: 20111129
  Receipt Date: 20111122
  Transmission Date: 20120403
  Serious: No
  Sender: FDA-Public Use
  Company Number: US-PFIZER INC-2011286573

PATIENT
  Sex: Female

DRUGS (3)
  1. DETROL [Suspect]
     Dosage: 2 MG, 2X/DAY
  2. LASIX [Concomitant]
  3. POTASSIUM CHLORIDE [Interacting]
     Dosage: UNK

REACTIONS (2)
  - DRUG INTERACTION [None]
  - OEDEMA PERIPHERAL [None]
